FAERS Safety Report 4476676-X (Version None)
Quarter: 2004Q4

REPORT INFORMATION
  Report Type: 
  Country: None (occurrence: None)
  Receive Date: 20041015
  Receipt Date: 20041015
  Transmission Date: 20050328
  Serious: Yes (Other)
  Sender: FDA-Public Use
  Company Number: None

PATIENT
  Age: 25 Year
  Sex: Female
  Weight: 60 kg

DRUGS (2)
  1. LEXAPRO [Suspect]
     Indication: GENERALISED ANXIETY DISORDER
     Dosage: 10 MG DAILY ORAL
     Route: 048
     Dates: start: 20041012, end: 20041012
  2. CLONAZEPAM [Concomitant]

REACTIONS (5)
  - DIZZINESS [None]
  - EPISTAXIS [None]
  - FEELING ABNORMAL [None]
  - HYPOAESTHESIA [None]
  - MYDRIASIS [None]
